FAERS Safety Report 21895602 (Version 1)
Quarter: 2023Q1

REPORT INFORMATION
  Report Type: Spontaneous
  Country: US (occurrence: US)
  Receive Date: 20230123
  Receipt Date: 20230123
  Transmission Date: 20230418
  Serious: No
  Sender: FDA-Public Use
  Company Number: US-JNJFOC-20230126719

PATIENT
  Sex: Female
  Weight: 90.800 kg

DRUGS (22)
  1. TYLENOL 8 HR ARTHRITIS PAIN [Suspect]
     Active Substance: ACETAMINOPHEN
     Indication: Arthritis
     Dosage: 1 TABLET TWICE DAILY
     Route: 048
     Dates: end: 202203
  2. TYLENOL 8 HR ARTHRITIS PAIN [Suspect]
     Active Substance: ACETAMINOPHEN
     Indication: Arthralgia
  3. ZYRTEC [Concomitant]
     Active Substance: CETIRIZINE HYDROCHLORIDE
     Indication: Product used for unknown indication
     Route: 065
  4. DIETARY SUPPLEMENT\HERBALS\MILK THISTLE [Concomitant]
     Active Substance: DIETARY SUPPLEMENT\HERBALS\MILK THISTLE
     Indication: Nutritional supplementation
     Route: 065
     Dates: start: 2012, end: 20221214
  5. FOLIC ACID [Concomitant]
     Active Substance: FOLIC ACID
     Indication: Nutritional supplementation
     Dosage: USED FOR 10 YEARS
     Route: 048
     Dates: start: 2012, end: 20221214
  6. ACETYLCYSTEINE [Concomitant]
     Active Substance: ACETYLCYSTEINE
     Indication: Nutritional supplementation
     Route: 048
     Dates: start: 2012, end: 20221214
  7. BIOTIN [Concomitant]
     Active Substance: BIOTIN
     Indication: Nutritional supplementation
     Route: 048
     Dates: start: 2012, end: 20221214
  8. GINKGO [Concomitant]
     Active Substance: GINKGO
     Indication: Nutritional supplementation
     Route: 048
     Dates: start: 2012, end: 20221214
  9. APPLE CIDER VINEGAR [CYANOCOBALAMIN;FOLIC ACID;MALUS SPP. VINEGAR EXTR [Concomitant]
     Indication: Nutritional supplementation
     Route: 048
     Dates: start: 2012, end: 20221214
  10. SELENIUM [Concomitant]
     Active Substance: SELENIUM
     Indication: Nutritional supplementation
     Route: 048
     Dates: start: 2012, end: 20221214
  11. PROBIOTIC ACIDOPHILUS [LACTOBACILLUS ACIDOPHILUS] [Concomitant]
     Indication: Nutritional supplementation
     Dosage: ONCE PER DAY IN THE MORNING
     Route: 048
     Dates: start: 2021, end: 202209
  12. GLUCOSAMINE CHONDROITIN MSM [CHONDROITIN SULFATE;GLUCOSAMINE HYDROCHLO [Concomitant]
     Indication: Nutritional supplementation
     Dosage: ONE CAPLET IN THE MORNING AND ONE CAPLET AT NIGHT
     Route: 048
     Dates: start: 2018, end: 202203
  13. CALM TABS [Concomitant]
     Indication: Nutritional supplementation
     Route: 065
     Dates: start: 2012, end: 20221214
  14. PEPPERMINT GELS [Concomitant]
     Indication: Nutritional supplementation
     Route: 048
     Dates: end: 20221214
  15. PANCREATIN [Concomitant]
     Active Substance: PANCRELIPASE
     Indication: Nutritional supplementation
     Route: 048
     Dates: start: 202204, end: 20221212
  16. LEVOTHYROXINE [Concomitant]
     Active Substance: LEVOTHYROXINE
     Indication: Product used for unknown indication
     Route: 065
  17. GABAPENTIN [Concomitant]
     Active Substance: GABAPENTIN
     Indication: Neck pain
     Dosage: ONE TO TWO TABLETS PER DAY
     Route: 065
  18. VITAMIN B6 [Concomitant]
     Active Substance: PYRIDOXINE HYDROCHLORIDE
     Indication: Product used for unknown indication
     Route: 065
  19. FISH OIL [Concomitant]
     Active Substance: FISH OIL
     Indication: Product used for unknown indication
     Dosage: ONCE DAILY FOR A YEARS
     Route: 048
  20. MELATONIN [Concomitant]
     Active Substance: MELATONIN
     Indication: Product used for unknown indication
     Dosage: ONCE DAILY FOR A YEARS
     Route: 065
  21. CORAL CALCIUM [CALCIUM] [Concomitant]
     Indication: Product used for unknown indication
     Dosage: ONCE DAILY FOR YEARS.
     Route: 065
  22. VITAMIN D3 [Concomitant]
     Active Substance: CHOLECALCIFEROL
     Indication: Product used for unknown indication
     Route: 065

REACTIONS (2)
  - Incorrect dose administered [Unknown]
  - Inappropriate schedule of product administration [Unknown]
